FAERS Safety Report 25793043 (Version 1)
Quarter: 2025Q3

REPORT INFORMATION
  Report Type: Spontaneous
  Country: IN (occurrence: IN)
  Receive Date: 20250911
  Receipt Date: 20250911
  Transmission Date: 20251020
  Serious: Yes (Other)
  Sender: PFIZER
  Company Number: IN-PFIZER INC-PV202500109268

PATIENT
  Age: 70 Year
  Sex: Female

DRUGS (1)
  1. CRIZOTINIB [Suspect]
     Active Substance: CRIZOTINIB
     Dosage: 250 MG, 2X/DAY
     Route: 048

REACTIONS (9)
  - Immunodeficiency [Unknown]
  - Depressed level of consciousness [Unknown]
  - Cerebral disorder [Unknown]
  - Eye disorder [Unknown]
  - Infection [Unknown]
  - Asthenia [Unknown]
  - Mutism [Unknown]
  - Gait inability [Unknown]
  - Bedridden [Unknown]
